FAERS Safety Report 9758238 (Version 1)
Quarter: 2013Q4

REPORT INFORMATION
  Report Type: Spontaneous
  Country: US (occurrence: None)
  Receive Date: 20131213
  Receipt Date: 20131213
  Transmission Date: 20140711
  Serious: No
  Sender: FDA-Public Use
  Company Number: None

PATIENT
  Age: 45 Year
  Sex: Female
  Weight: 49.9 kg

DRUGS (1)
  1. MIRVASO [Suspect]
     Indication: ROSACEA
     Dates: start: 20131210, end: 20131211

REACTIONS (2)
  - Erythema [None]
  - Condition aggravated [None]
